FAERS Safety Report 18106480 (Version 1)
Quarter: 2020Q3

REPORT INFORMATION
  Report Type: Spontaneous
  Country: US (occurrence: US)
  Receive Date: 20200802
  Receipt Date: 20200802
  Transmission Date: 20201103
  Serious: No
  Sender: FDA-Public Use
  Company Number: None

PATIENT
  Age: 69 Year
  Sex: Male
  Weight: 72 kg

DRUGS (9)
  1. LISINOPRIL. [Concomitant]
     Active Substance: LISINOPRIL
  2. HCTZ [Concomitant]
     Active Substance: HYDROCHLOROTHIAZIDE
  3. TAMSULOSIN [Concomitant]
     Active Substance: TAMSULOSIN
  4. MULTIPLE VITAMIN [Concomitant]
     Active Substance: VITAMINS
  5. GLUCOSAMINE [Concomitant]
     Active Substance: GLUCOSAMINE
  6. ULTRA DEFENSE SANI SMART HAND SANITIZER [Suspect]
     Active Substance: ALCOHOL
     Indication: INFECTION PROPHYLAXIS
     Route: 061
  7. POTASSIUM [Concomitant]
     Active Substance: POTASSIUM
  8. SAW PALMETTO [Concomitant]
     Active Substance: HERBALS\SAW PALMETTO
  9. LUTEIN [Concomitant]
     Active Substance: LUTEIN

REACTIONS (2)
  - Product label on wrong product [None]
  - Product label confusion [None]

NARRATIVE: CASE EVENT DATE: 20200801
